FAERS Safety Report 20802097 (Version 1)
Quarter: 2022Q2

REPORT INFORMATION
  Report Type: Spontaneous
  Country: US (occurrence: None)
  Receive Date: 20220506
  Receipt Date: 20220506
  Transmission Date: 20220720
  Serious: Yes (Death)
  Sender: FDA-Public Use
  Company Number: None

PATIENT
  Age: 62 Year
  Sex: Female
  Weight: 76.2 kg

DRUGS (14)
  1. PACLITAXEL [Suspect]
     Active Substance: PACLITAXEL
     Indication: Ovarian cancer
     Dosage: OTHER FREQUENCY : DAY 1, 8 AND 15 ;?  110 MG  DAILY ON DAY 1,DAY 8, DAY 15                      ILDA
     Route: 042
  2. CARBOPLATIN [Suspect]
     Active Substance: CARBOPLATIN
     Indication: Ovarian cancer
     Dosage: OTHER FREQUENCY : DAY 1,8 AND 15;?  300 MGDAILY ON DAY 1,DAY 8, DAY 15
     Route: 042
  3. PALONOSETRON [Suspect]
     Active Substance: PALONOSETRON
  4. DEXAMETHASONE [Suspect]
     Active Substance: DEXAMETHASONE
  5. DIPHENHYDRAMINE [Suspect]
     Active Substance: DIPHENHYDRAMINE
  6. FAMOTIDINE [Suspect]
     Active Substance: FAMOTIDINE
  7. AMITRIPTYLINE [Concomitant]
     Active Substance: AMITRIPTYLINE
  8. CYCLOBENZAPRINE [Concomitant]
     Active Substance: CYCLOBENZAPRINE
  9. FENTANYL [Concomitant]
     Active Substance: FENTANYL
  10. FUROSEMIDE [Concomitant]
     Active Substance: FUROSEMIDE
  11. LOVENOX [Concomitant]
     Active Substance: ENOXAPARIN SODIUM
  12. MARINOL [Concomitant]
     Active Substance: DRONABINOL
  13. OXYCODONE HYDROCHLORIDE [Concomitant]
     Active Substance: OXYCODONE HYDROCHLORIDE
  14. SIMVASTATIN [Concomitant]
     Active Substance: SIMVASTATIN

REACTIONS (1)
  - Death [None]
